FAERS Safety Report 5066274-1 (Version None)
Quarter: 2006Q3

REPORT INFORMATION
  Report Type: 
  Country: None (occurrence: None)
  Receive Date: 20060706
  Receipt Date: 20050831
  Transmission Date: 20061208
  Serious: Yes (Hospitalization)
  Sender: FDA-Public Use
  Company Number: 1895

PATIENT
  Age: 82 Year
  Sex: Female

DRUGS (12)
  1. AVINZA [Suspect]
     Indication: NEURALGIA
     Dosage: 60 MG/M^2 BID PO
     Route: 048
     Dates: start: 20050502
  2. CLOPIDOGREL BISULFATE [Concomitant]
  3. DONEPEZIL HYDROCHLORIDE [Concomitant]
  4. GABAPENTIN [Concomitant]
  5. GLIBENCLAMIDE [Concomitant]
  6. LEVOTHYROXINE SODIUM [Concomitant]
  7. MIRTAZAPINE [Concomitant]
  8. OLANZAPINE [Concomitant]
  9. OXYCOCET [Concomitant]
  10. OXYCODONE HCL [Concomitant]
  11. POTASSIUM CHLORIDE [Concomitant]
  12. SERTRALINE CHLORIDE [Concomitant]

REACTIONS (3)
  - CONFUSIONAL STATE [None]
  - HYPOTENSION [None]
  - SOMNOLENCE [None]
